FAERS Safety Report 4741600-9 (Version None)
Quarter: 2005Q3

REPORT INFORMATION
  Report Type: 
  Country: None (occurrence: None)
  Receive Date: 20050801
  Receipt Date: 20050624
  Transmission Date: 20060218
  Serious: No
  Sender: FDA-Public Use
  Company Number: 2005PV000172

PATIENT
  Age: 38 Year
  Sex: Male
  Weight: 114.76 kg

DRUGS (6)
  1. BYETTA [Suspect]
     Indication: DIABETES MELLITUS NON-INSULIN-DEPENDENT
     Dosage: 5 UG;BID;SC
     Route: 058
     Dates: start: 20050614
  2. METFORMIN [Concomitant]
  3. ACTOS [Concomitant]
  4. VICODIN ES [Concomitant]
  5. WELLBUTRIN [Concomitant]
  6. ACIPHEX [Concomitant]

REACTIONS (1)
  - MYALGIA [None]
